FAERS Safety Report 17868102 (Version 1)
Quarter: 2020Q2

REPORT INFORMATION
  Report Type: Spontaneous
  Country: US (occurrence: US)
  Receive Date: 20200606
  Receipt Date: 20200606
  Transmission Date: 20200714
  Serious: Yes (Other)
  Sender: FDA-Public Use
  Company Number: US-ABBVIE-20K-163-3428440-00

PATIENT
  Age: 74 Year

DRUGS (5)
  1. ASPIRIN. [Concomitant]
     Active Substance: ASPIRIN
     Indication: PRODUCT USED FOR UNKNOWN INDICATION
  2. PREMARIN [Concomitant]
     Active Substance: ESTROGENS, CONJUGATED
     Indication: PRODUCT USED FOR UNKNOWN INDICATION
  3. SYNTHROID [Concomitant]
     Active Substance: LEVOTHYROXINE SODIUM
     Indication: PRODUCT USED FOR UNKNOWN INDICATION
  4. SKYRIZI [Suspect]
     Active Substance: RISANKIZUMAB-RZAA
     Indication: PSORIASIS
     Route: 058
     Dates: start: 2019
  5. FLECAINIDE [Concomitant]
     Active Substance: FLECAINIDE
     Indication: PRODUCT USED FOR UNKNOWN INDICATION

REACTIONS (11)
  - Red blood cell sedimentation rate increased [Not Recovered/Not Resolved]
  - Claudication of jaw muscles [Recovering/Resolving]
  - Oral herpes [Recovered/Resolved]
  - Headache [Recovering/Resolving]
  - Pain of skin [Recovering/Resolving]
  - Temporal arteritis [Not Recovered/Not Resolved]
  - Pain in jaw [Recovering/Resolving]
  - C-reactive protein increased [Not Recovered/Not Resolved]
  - Pain [Recovering/Resolving]
  - Fatigue [Recovering/Resolving]
  - Musculoskeletal stiffness [Recovering/Resolving]

NARRATIVE: CASE EVENT DATE: 2020
